FAERS Safety Report 5170773-1 (Version None)
Quarter: 2006Q4

REPORT INFORMATION
  Report Type: 
  Country: None (occurrence: None)
  Receive Date: 20060919
  Receipt Date: 20060615
  Transmission Date: 20070319
  Serious: No
  Sender: FDA-Public Use
  Company Number: BDI-008333

PATIENT
  Age: 40 Year
  Sex: Female

DRUGS (3)
  1. MULTIHANCE [Suspect]
     Indication: AMBLYOPIA
     Dosage: 15 ML ONCE IV
     Route: 042
     Dates: start: 20060614, end: 20060614
  2. MULTIHANCE [Suspect]
     Indication: NUCLEAR MAGNETIC RESONANCE IMAGING BRAIN
     Dosage: 15 ML ONCE IV
     Route: 042
     Dates: start: 20060614, end: 20060614
  3. VIBRAMYCIN [Concomitant]

REACTIONS (1)
  - HYPERSENSITIVITY [None]
